FAERS Safety Report 14700528 (Version 1)
Quarter: 2018Q1

REPORT INFORMATION
  Report Type: Spontaneous
  Country: US (occurrence: US)
  Receive Date: 20180330
  Receipt Date: 20180330
  Transmission Date: 20180509
  Serious: Yes (Death, Hospitalization, Other)
  Sender: FDA-Public Use
  Company Number: US-ELI_LILLY_AND_COMPANY-US95042773A

PATIENT
  Age: 9 Year
  Sex: Male
  Weight: 20.46 kg

DRUGS (4)
  1. PROMETHAZINE [Concomitant]
     Active Substance: PROMETHAZINE\PROMETHAZINE HYDROCHLORIDE
     Indication: NAUSEA
     Dosage: 25 MG, DAILY (1/D)
  2. PROZAC [Suspect]
     Active Substance: FLUOXETINE HYDROCHLORIDE
     Indication: OBSESSIVE-COMPULSIVE DISORDER
     Dosage: 100 MG, DAILY
     Route: 048
     Dates: start: 199406, end: 19950225
  3. CLONIDINE. [Concomitant]
     Active Substance: CLONIDINE
     Indication: TOURETTE^S DISORDER
     Dosage: 0.8 MG, DAILY (1/D)
     Route: 048
     Dates: end: 19950225
  4. RITALIN [Concomitant]
     Active Substance: METHYLPHENIDATE HYDROCHLORIDE
     Indication: ATTENTION DEFICIT/HYPERACTIVITY DISORDER
     Dosage: 20 MG, 3/D
     Route: 048
     Dates: start: 1992, end: 19950225

REACTIONS (18)
  - Apnoea [Not Recovered/Not Resolved]
  - Gait disturbance [Unknown]
  - Status epilepticus [Fatal]
  - Delirium [Unknown]
  - Pyrexia [Unknown]
  - Disorientation [Unknown]
  - Drug ineffective [Unknown]
  - Tremor [Unknown]
  - Dehydration [Unknown]
  - Diarrhoea [Unknown]
  - Headache [Unknown]
  - Overdose [Fatal]
  - Influenza like illness [Unknown]
  - Influenza [Unknown]
  - Cardio-respiratory arrest [Unknown]
  - Vomiting [Unknown]
  - Nausea [Unknown]
  - Dizziness [Unknown]

NARRATIVE: CASE EVENT DATE: 199501
